FAERS Safety Report 7636244-5 (Version None)
Quarter: 2011Q3

REPORT INFORMATION
  Report Type: 
  Country: None (occurrence: None)
  Receive Date: 20110726
  Receipt Date: 20110718
  Transmission Date: 20111222
  Serious: Yes (Other)
  Sender: FDA-Public Use
  Company Number: US-ABBOTT-11P-163-0840978-00

PATIENT
  Age: 32 Year
  Sex: Female

DRUGS (21)
  1. REGLAN [Concomitant]
     Indication: NAUSEA
     Route: 048
  2. PHENERGAN HCL [Concomitant]
     Indication: INSOMNIA
     Route: 048
  3. OXYCODONE HCL [Concomitant]
     Indication: PRODUCT USED FOR UNKNOWN INDICATION
  4. LOMOTIL [Concomitant]
     Indication: PRODUCT USED FOR UNKNOWN INDICATION
  5. LIDOCAINE [Concomitant]
     Indication: PRODUCT USED FOR UNKNOWN INDICATION
     Dosage: PATCH
  6. ALLEGRA [Concomitant]
     Indication: PRODUCT USED FOR UNKNOWN INDICATION
  7. ATARAX [Concomitant]
     Indication: PRODUCT USED FOR UNKNOWN INDICATION
  8. VITAMIN B-12 [Concomitant]
     Indication: PRODUCT USED FOR UNKNOWN INDICATION
  9. SUDAFED 12 HOUR [Concomitant]
     Indication: PRODUCT USED FOR UNKNOWN INDICATION
  10. LEXAPRO [Concomitant]
     Indication: PRODUCT USED FOR UNKNOWN INDICATION
     Dosage: EVERY DAY
  11. ATIVAN [Concomitant]
     Indication: PRODUCT USED FOR UNKNOWN INDICATION
  12. VITAMIN D [Concomitant]
     Indication: PRODUCT USED FOR UNKNOWN INDICATION
  13. BENADRYL [Concomitant]
     Indication: PRODUCT USED FOR UNKNOWN INDICATION
  14. VALIUM [Concomitant]
     Indication: PRODUCT USED FOR UNKNOWN INDICATION
  15. ZOFRAN [Concomitant]
     Indication: NAUSEA
     Dosage: DAILY
     Route: 048
  16. SIMETHICONE [Concomitant]
     Indication: PRODUCT USED FOR UNKNOWN INDICATION
  17. IMODIUM [Concomitant]
     Indication: PRODUCT USED FOR UNKNOWN INDICATION
  18. HUMIRA [Suspect]
     Indication: CROHN'S DISEASE
     Route: 058
     Dates: start: 20110512, end: 20110526
  19. AZATHIOPRINE [Concomitant]
     Indication: PRODUCT USED FOR UNKNOWN INDICATION
     Dosage: DAILY
     Route: 048
  20. AMBIEN [Concomitant]
     Indication: INSOMNIA
     Dosage: DAILY, AS NEEDED
     Route: 048
  21. ETHINYL ESTRADIOL AND NORETHINDRONE [Concomitant]
     Indication: CONTRACEPTION

REACTIONS (17)
  - FATIGUE [None]
  - HYPOTENSION [None]
  - RASH GENERALISED [None]
  - OPTIC NERVE DISORDER [None]
  - VISUAL IMPAIRMENT [None]
  - HYPERHIDROSIS [None]
  - FEELING ABNORMAL [None]
  - HEADACHE [None]
  - CHILLS [None]
  - FEELING HOT [None]
  - DYSARTHRIA [None]
  - PAIN [None]
  - SUICIDAL IDEATION [None]
  - MUSCULAR WEAKNESS [None]
  - INSOMNIA [None]
  - PARAESTHESIA [None]
  - ABASIA [None]
